FAERS Safety Report 21684852 (Version 1)
Quarter: 2022Q4

REPORT INFORMATION
  Report Type: Spontaneous
  Country: JP (occurrence: JP)
  Receive Date: 20221205
  Receipt Date: 20221205
  Transmission Date: 20230112
  Serious: Yes (Other)
  Sender: FDA-Public Use
  Company Number: JP-ASTELLAS-2022JP017618

PATIENT
  Age: 77 Year
  Sex: Male

DRUGS (7)
  1. XTANDI [Suspect]
     Active Substance: ENZALUTAMIDE
     Indication: Prostate cancer metastatic
     Dosage: UNK UNK, UNKNOWN FREQ.
     Route: 048
     Dates: start: 202202
  2. HARNAL [Suspect]
     Active Substance: TAMSULOSIN HYDROCHLORIDE
     Indication: Product used for unknown indication
     Dosage: UNK UNK, UNKNOWN FREQ.
     Route: 048
  3. LUVOX [Concomitant]
     Active Substance: FLUVOXAMINE MALEATE
     Indication: Product used for unknown indication
     Dosage: UNK UNK, UNKNOWN FREQ.
     Route: 048
  4. SOLANAX [Concomitant]
     Active Substance: ALPRAZOLAM
     Indication: Product used for unknown indication
     Dosage: UNK UNK, UNKNOWN FREQ.
     Route: 048
  5. LORAZEPAM [Concomitant]
     Active Substance: LORAZEPAM
     Indication: Product used for unknown indication
     Dosage: UNK UNK, UNKNOWN FREQ.
     Route: 048
  6. HERBALS [Concomitant]
     Active Substance: HERBALS
     Indication: Product used for unknown indication
     Dosage: UNK UNK, UNKNOWN FREQ.
     Route: 048
  7. LEUPLIN [Concomitant]
     Active Substance: LEUPROLIDE ACETATE
     Indication: Prostate cancer
     Dosage: UNK UNK, UNKNOWN FREQ.
     Route: 048

REACTIONS (7)
  - Prostate cancer [Unknown]
  - Metastases to bone [Unknown]
  - Hypertonic bladder [Unknown]
  - Sleep disorder [Unknown]
  - Blood pressure increased [Unknown]
  - Palpitations [Unknown]
  - Product use in unapproved indication [Unknown]
